FAERS Safety Report 10804258 (Version 1)
Quarter: 2015Q1

REPORT INFORMATION
  Report Type: Report from Study
  Country: US (occurrence: US)
  Receive Date: 20150217
  Receipt Date: 20150217
  Transmission Date: 20150721
  Serious: No
  Sender: FDA-Public Use
  Company Number: US-ABBVIE-14K-163-1256139-00

PATIENT
  Age: 62 Year
  Sex: Female

DRUGS (10)
  1. VITAMIN D [Concomitant]
     Active Substance: CHOLECALCIFEROL
     Indication: VITAMIN SUPPLEMENTATION
  2. TRAMADOL [Concomitant]
     Active Substance: TRAMADOL
     Indication: INSOMNIA
  3. LODINE [Concomitant]
     Active Substance: ETODOLAC
     Indication: PAIN
     Dosage: AT NIGHT
  4. HUMIRA [Suspect]
     Active Substance: ADALIMUMAB
     Indication: PSORIATIC ARTHROPATHY
     Dates: start: 20140304
  5. TRAMADOL [Concomitant]
     Active Substance: TRAMADOL
     Indication: PAIN
     Dosage: AT NIGHT
  6. ZETIA [Concomitant]
     Active Substance: EZETIMIBE
     Indication: BLOOD CHOLESTEROL INCREASED
  7. LODINE [Concomitant]
     Active Substance: ETODOLAC
     Indication: GASTROOESOPHAGEAL REFLUX DISEASE
  8. STAHIST [Concomitant]
     Indication: SINUS DISORDER
  9. LODINE [Concomitant]
     Active Substance: ETODOLAC
     Indication: INSOMNIA
  10. SYNTHROID [Concomitant]
     Active Substance: LEVOTHYROXINE SODIUM
     Indication: HYPOTHYROIDISM

REACTIONS (3)
  - Arthralgia [Not Recovered/Not Resolved]
  - Psoriatic arthropathy [Not Recovered/Not Resolved]
  - Drug ineffective [Not Recovered/Not Resolved]

NARRATIVE: CASE EVENT DATE: 201403
